FAERS Safety Report 18674290 (Version 1)
Quarter: 2020Q4

REPORT INFORMATION
  Report Type: Spontaneous
  Country: AU (occurrence: AU)
  Receive Date: 20201228
  Receipt Date: 20201228
  Transmission Date: 20210114
  Serious: Yes (Hospitalization)
  Sender: FDA-Public Use
  Company Number: AU-JNJFOC-20201239559

PATIENT
  Sex: Male

DRUGS (9)
  1. VALSARTAN AND AMLODIPINE [AMLODIPINE;VALSARTAN] [Suspect]
     Active Substance: AMLODIPINE\VALSARTAN
     Indication: PRODUCT USED FOR UNKNOWN INDICATION
     Dosage: VALSARTAN/AMLODIPINE 320MG/5MG APPROXIMATELY 28 TABLETS
     Route: 048
     Dates: start: 20191108, end: 20191108
  2. XELJANZ [Suspect]
     Active Substance: TOFACITINIB CITRATE
     Indication: PRODUCT USED FOR UNKNOWN INDICATION
     Dosage: APPROXIMATELY 56 TABLETS
     Route: 048
     Dates: start: 20191108, end: 20191108
  3. MOCLOBEMIDE [Suspect]
     Active Substance: MOCLOBEMIDE
     Indication: PRODUCT USED FOR UNKNOWN INDICATION
     Dosage: APPROXIMATELY 106 TABLETS
     Route: 048
     Dates: start: 20191108, end: 20191108
  4. PARACETAMOL [Suspect]
     Active Substance: ACETAMINOPHEN
     Indication: PRODUCT USED FOR UNKNOWN INDICATION
     Dosage: APPROXIMATELY 110 TABLETS
     Route: 048
     Dates: start: 20191108, end: 20191108
  5. VENLAFAXINE [Suspect]
     Active Substance: VENLAFAXINE HYDROCHLORIDE
     Indication: PRODUCT USED FOR UNKNOWN INDICATION
     Dosage: APPROXIMATELY 12 TABLETS
     Route: 048
     Dates: start: 20191108, end: 20191108
  6. ESCITALOPRAM [Suspect]
     Active Substance: ESCITALOPRAM OXALATE
     Indication: PRODUCT USED FOR UNKNOWN INDICATION
     Dosage: APPROXIMATELY 28 TABLETS
     Route: 048
     Dates: start: 20191108, end: 20191108
  7. TRAMADOL. [Suspect]
     Active Substance: TRAMADOL
     Indication: PRODUCT USED FOR UNKNOWN INDICATION
     Dosage: APPROXIMATELY 10 TABLETS
     Route: 048
     Dates: start: 20191108, end: 20191108
  8. ESOMEPRAZOLE. [Suspect]
     Active Substance: ESOMEPRAZOLE MAGNESIUM
     Indication: PRODUCT USED FOR UNKNOWN INDICATION
     Dosage: APPROXIMATELY 28 TABLETS
     Route: 048
     Dates: start: 20191108, end: 20191108
  9. FLUOXETINE [Suspect]
     Active Substance: FLUOXETINE HYDROCHLORIDE
     Indication: PRODUCT USED FOR UNKNOWN INDICATION
     Dosage: APPROXIMATELY 28 TABLETS
     Route: 048
     Dates: start: 20191108, end: 20191108

REACTIONS (6)
  - Serotonin syndrome [Recovered/Resolved]
  - Physical deconditioning [Recovered/Resolved]
  - Acute kidney injury [Recovered/Resolved]
  - Suicidal ideation [Recovered/Resolved]
  - Metabolic acidosis [Recovered/Resolved]
  - Intentional overdose [Recovered/Resolved]

NARRATIVE: CASE EVENT DATE: 20191108
